FAERS Safety Report 7455594-9 (Version None)
Quarter: 2011Q2

REPORT INFORMATION
  Report Type: 
  Country: None (occurrence: None)
  Receive Date: 20110503
  Receipt Date: 20110426
  Transmission Date: 20111010
  Serious: Yes (Death)
  Sender: FDA-Public Use
  Company Number: DE-ROCHE-773593

PATIENT
  Sex: Male
  Weight: 75 kg

DRUGS (4)
  1. FLUOROURACIL [Concomitant]
     Dates: start: 20100921, end: 20101130
  2. FOLINIC ACID [Concomitant]
     Dates: start: 20100921, end: 20101130
  3. BEVACIZUMAB [Suspect]
     Dosage: ROUTE:INJECTION, DOSE 7.5
     Route: 050
     Dates: start: 20100921, end: 20101130
  4. IRINOTECAN [Concomitant]
     Dates: start: 20100921, end: 20101130

REACTIONS (2)
  - NO THERAPEUTIC RESPONSE [None]
  - NEOPLASM MALIGNANT [None]
